FAERS Safety Report 16285352 (Version 1)
Quarter: 2019Q2

REPORT INFORMATION
  Report Type: Spontaneous
  Country: US (occurrence: US)
  Receive Date: 20190508
  Receipt Date: 20190508
  Transmission Date: 20190711
  Serious: Yes (Hospitalization)
  Sender: FDA-Public Use
  Company Number: US-FRESENIUS KABI-FK201905221

PATIENT
  Age: 42 Year
  Sex: Male

DRUGS (6)
  1. VASOPRESSIN INJECTION (MANUFACTURER UNKNOWN) [Suspect]
     Active Substance: VASOPRESSIN
     Indication: BLOOD PRESSURE MANAGEMENT
     Route: 065
  2. MEROPENEM (MANUFACTURER UNKNOWN) [Suspect]
     Active Substance: MEROPENEM
     Indication: PRODUCT USED FOR UNKNOWN INDICATION
     Route: 065
  3. DOBUTAMINE [Suspect]
     Active Substance: DOBUTAMINE\DOBUTAMINE HYDROCHLORIDE
     Indication: BLOOD PRESSURE MANAGEMENT
     Route: 065
  4. PHENYLEPHRINE [Suspect]
     Active Substance: PHENYLEPHRINE\PHENYLEPHRINE HYDROCHLORIDE
     Indication: BLOOD PRESSURE MANAGEMENT
     Route: 065
  5. METHYLPREDNISOLONE (MANUFACTURER UNKNOWN) [Suspect]
     Active Substance: METHYLPREDNISOLONE
     Indication: BLOOD PRESSURE MANAGEMENT
     Dosage: MULTIPLE DOSES
     Route: 042
  6. NOREPINEPHRINE. [Suspect]
     Active Substance: NOREPINEPHRINE
     Indication: BLOOD PRESSURE MANAGEMENT
     Route: 065

REACTIONS (4)
  - Product use in unapproved indication [Unknown]
  - Gastric ulcer [Not Recovered/Not Resolved]
  - Mucormycosis [None]
  - Ischaemia [None]
